FAERS Safety Report 19772742 (Version 3)
Quarter: 2021Q3

REPORT INFORMATION
  Report Type: Report from Study
  Country: US (occurrence: US)
  Receive Date: 20210831
  Receipt Date: 20210909
  Transmission Date: 20211014
  Serious: Yes (Other)
  Sender: FDA-Public Use
  Company Number: US-BAUSCH-BL-2021-020507

PATIENT
  Age: 43 Year
  Sex: Male

DRUGS (3)
  1. SILIQ [Suspect]
     Active Substance: BRODALUMAB
     Dosage: 210 MG/1.5 ML, FREQUENCY: PATIENT TOOK IT OFF LABEL EVERY WEEK
     Route: 058
     Dates: start: 202106
  2. SILIQ [Suspect]
     Active Substance: BRODALUMAB
     Dosage: 210 MG/1.5 ML
     Route: 058
     Dates: start: 202101
  3. SILIQ [Suspect]
     Active Substance: BRODALUMAB
     Indication: PSORIASIS
     Dosage: 210 MG/1.5 ML, FREQUENCY: PATIENT TOOK IT OFF LABEL EVERY WEEK
     Route: 058
     Dates: start: 202104, end: 20210521

REACTIONS (4)
  - Weight decreased [Unknown]
  - Psoriatic arthropathy [Unknown]
  - Therapy interrupted [Unknown]
  - Off label use [Unknown]

NARRATIVE: CASE EVENT DATE: 20210401
